FAERS Safety Report 8322592-2 (Version None)
Quarter: 2012Q2

REPORT INFORMATION
  Report Type: 
  Country: None (occurrence: None)
  Receive Date: 20120426
  Receipt Date: 20120414
  Transmission Date: 20120825
  Serious: Yes (Hospitalization)
  Sender: FDA-Public Use
  Company Number: 001199584A

PATIENT
  Age: 50 Year
  Sex: Male

DRUGS (1)
  1. PROACTIV [Suspect]
     Indication: ACNE
     Dosage: 1 DCOSE DERMAL BID
     Dates: start: 20120317, end: 20120407

REACTIONS (6)
  - WEIGHT DECREASED [None]
  - BLOOD COUNT ABNORMAL [None]
  - BURNING SENSATION [None]
  - MALAISE [None]
  - ERYTHEMA [None]
  - PYREXIA [None]
